FAERS Safety Report 9690788 (Version 4)
Quarter: 2014Q2

REPORT INFORMATION
  Report Type: Spontaneous
  Country: JP (occurrence: JP)
  Receive Date: 20131115
  Receipt Date: 20140409
  Transmission Date: 20141212
  Serious: Yes (Death, Other)
  Sender: FDA-Public Use
  Company Number: JP-PFIZER INC-2013324957

PATIENT
  Age: 86 Year
  Sex: Male

DRUGS (7)
  1. ESTRACYT [Suspect]
     Indication: PROSTATE CANCER
     Dosage: 313.4 MG, DAILY
     Route: 048
     Dates: start: 20110804, end: 20120118
  2. ESTRACYT [Suspect]
     Dosage: 313.4 MG, DAILY
     Route: 048
     Dates: start: 20120607, end: 20121120
  3. ESTRACYT [Suspect]
     Dosage: 626.8 MG, DAILY
     Route: 048
     Dates: start: 20121121, end: 20131024
  4. URIEF [Concomitant]
     Dosage: UNK
     Route: 048
     Dates: start: 20070421
  5. DECADRON [Concomitant]
     Dosage: UNK
     Route: 048
     Dates: start: 20120119
  6. PRIMPERAN [Concomitant]
     Dosage: UNK
     Dates: start: 20080105
  7. RECALBON [Concomitant]
     Dosage: UNK
     Dates: start: 20100610

REACTIONS (3)
  - Retinal vein occlusion [Not Recovered/Not Resolved]
  - Retinal vein occlusion [Not Recovered/Not Resolved]
  - Death [Fatal]
